FAERS Safety Report 17051216 (Version 1)
Quarter: 2019Q4

REPORT INFORMATION
  Report Type: Report from Study
  Country: None (occurrence: IT)
  Receive Date: 20191120
  Receipt Date: 20191120
  Transmission Date: 20200122
  Serious: Yes (Hospitalization)
  Sender: FDA-Public Use
  Company Number: IT-ABBVIE-19K-083-3003685-00

PATIENT
  Age: 75 Year
  Sex: Female

DRUGS (1)
  1. DUODOPA [Suspect]
     Active Substance: CARBIDOPA\LEVODOPA
     Indication: PARKINSON^S DISEASE
     Dosage: MD: 7+3 CR: 3,1 ED: 2,6
     Route: 050
     Dates: start: 20121002

REACTIONS (3)
  - Brain contusion [Unknown]
  - Fall [Unknown]
  - Brain injury [Unknown]

NARRATIVE: CASE EVENT DATE: 20191030
